FAERS Safety Report 21490278 (Version 1)
Quarter: 2022Q4

REPORT INFORMATION
  Report Type: Spontaneous
  Country: US (occurrence: US)
  Receive Date: 20221021
  Receipt Date: 20221021
  Transmission Date: 20230112
  Serious: No
  Sender: FDA-Public Use
  Company Number: US-CELLTRION INC.-2022US014084

PATIENT

DRUGS (1)
  1. INFLECTRA [Suspect]
     Active Substance: INFLIXIMAB-DYYB
     Indication: Product used for unknown indication
     Dosage: DIRECTIONS: INJECT 5 MG OF INFLECTRA MAINT, FREQUENCY: Q8 WEEKS, QUANTITY: 56 REFILLS: 11
     Route: 065

REACTIONS (1)
  - Unevaluable event [Unknown]
